FAERS Safety Report 20394675 (Version 4)
Quarter: 2022Q1

REPORT INFORMATION
  Report Type: Spontaneous
  Country: US (occurrence: US)
  Receive Date: 20220129
  Receipt Date: 20220227
  Transmission Date: 20220423
  Serious: Yes (Hospitalization)
  Sender: FDA-Public Use
  Company Number: US-TEVA-2022-US-1999554

PATIENT
  Age: 69 Year
  Sex: Female

DRUGS (5)
  1. NEFAZODONE HYDROCHLORIDE [Suspect]
     Active Substance: NEFAZODONE HYDROCHLORIDE
     Indication: Depression
     Dosage: OVER 18 YEARS
     Route: 065
  2. NEFAZODONE HYDROCHLORIDE [Suspect]
     Active Substance: NEFAZODONE HYDROCHLORIDE
     Route: 065
     Dates: start: 202110
  3. NEFAZODONE HYDROCHLORIDE [Suspect]
     Active Substance: NEFAZODONE HYDROCHLORIDE
     Dosage: 100 MILLIGRAM DAILY;
     Dates: start: 2022
  4. CLONAZEPAM [Suspect]
     Active Substance: CLONAZEPAM
     Indication: Anxiety
     Route: 065
     Dates: start: 20220204
  5. REMERON [Concomitant]
     Active Substance: MIRTAZAPINE

REACTIONS (28)
  - Hospitalisation [Recovered/Resolved]
  - Illness [Unknown]
  - Weight decreased [Unknown]
  - Hypophagia [Unknown]
  - Abdominal discomfort [Unknown]
  - Abnormal faeces [Unknown]
  - Anxiety [Not Recovered/Not Resolved]
  - Eating disorder [Not Recovered/Not Resolved]
  - Nervousness [Not Recovered/Not Resolved]
  - Alopecia [Not Recovered/Not Resolved]
  - COVID-19 [Recovered/Resolved]
  - Nervous system disorder [Not Recovered/Not Resolved]
  - Abdominal discomfort [Not Recovered/Not Resolved]
  - Loss of personal independence in daily activities [Not Recovered/Not Resolved]
  - Therapeutic response unexpected [Unknown]
  - Product use complaint [Unknown]
  - Wrong technique in product usage process [Unknown]
  - Inappropriate schedule of product administration [Unknown]
  - Product taste abnormal [Unknown]
  - Product availability issue [Unknown]
  - Nervousness [Unknown]
  - Tension [Unknown]
  - Depression [Unknown]
  - Insomnia [Unknown]
  - Therapeutic product effect variable [Unknown]
  - Wrong technique in product usage process [Unknown]
  - Obsessive-compulsive disorder [Unknown]
  - Impaired quality of life [Unknown]

NARRATIVE: CASE EVENT DATE: 20210101
